FAERS Safety Report 20561916 (Version 2)
Quarter: 2024Q3

REPORT INFORMATION
  Report Type: Report from Study
  Country: US (occurrence: US)
  Receive Date: 20220307
  Receipt Date: 20240726
  Transmission Date: 20241017
  Serious: Yes (Hospitalization)
  Sender: PAREXEL
  Company Number: US-AVEO ONCOLOGY-2021-AVEO-US003619

PATIENT

DRUGS (15)
  1. FOTIVDA [Suspect]
     Active Substance: TIVOZANIB HYDROCHLORIDE
     Indication: Renal cell carcinoma
     Dosage: 0.89 MG, DAILY, TAKE 1 CAP 0.89 PO DAYS 1 TO 14 OF 21D CYCLE
     Route: 048
     Dates: start: 20210813, end: 20211015
  2. BASAGLAR [Concomitant]
     Active Substance: INSULIN GLARGINE
  3. NOVOLOG [Concomitant]
     Active Substance: INSULIN ASPART
  4. VALTREX [Concomitant]
     Active Substance: VALACYCLOVIR HYDROCHLORIDE
  5. ATOVAQUONE [Concomitant]
     Active Substance: ATOVAQUONE
  6. PREDNISONE [Concomitant]
     Active Substance: PREDNISONE
  7. COREG [Concomitant]
     Active Substance: CARVEDILOL
  8. ZOFRAN [Concomitant]
     Active Substance: ONDANSETRON HYDROCHLORIDE
  9. GUANFACINE [Concomitant]
     Active Substance: GUANFACINE
  10. BENADRYL [Concomitant]
     Active Substance: DIPHENHYDRAMINE HYDROCHLORIDE
  11. ZYRTEC [Concomitant]
     Active Substance: CETIRIZINE HYDROCHLORIDE
  12. NASONEX [Concomitant]
     Active Substance: MOMETASONE FUROATE
  13. ELIQUIS [Concomitant]
     Active Substance: APIXABAN
  14. OMEPRAZOLE [Concomitant]
     Active Substance: OMEPRAZOLE
  15. ZOCOR [Concomitant]
     Active Substance: SIMVASTATIN

REACTIONS (6)
  - Swelling [Unknown]
  - Muscular weakness [Unknown]
  - Asthenia [Unknown]
  - Paraesthesia oral [Unknown]
  - Paraesthesia [Unknown]
  - Physical disability [Unknown]

NARRATIVE: CASE EVENT DATE: 20211011
